FAERS Safety Report 8369240-3 (Version None)
Quarter: 2012Q1

REPORT INFORMATION
  Report Type: 
  Country: None (occurrence: None)
  Receive Date: 20120323
  Receipt Date: 20111118
  Transmission Date: 20120608
  Serious: Yes (Other)
  Sender: FDA-Public Use
  Company Number: 163-21880-11112917

PATIENT
  Age: 73 Year
  Sex: Female

DRUGS (8)
  1. ATENOLOL [Concomitant]
  2. PROCRIT [Concomitant]
  3. ALLOPURINIOL (ALLOPRUINOL) [Concomitant]
  4. WARFARIN SODIUM [Concomitant]
  5. REVLIMID [Suspect]
     Indication: MULTIPLE MYELOMA
     Dosage: 15 MG, 1 IN 1 D, PO; 10 MG, DAILY, PO
     Route: 048
     Dates: start: 20090101, end: 20111101
  6. REVLIMID [Suspect]
     Indication: MULTIPLE MYELOMA
     Dosage: 15 MG, 1 IN 1 D, PO; 10 MG, DAILY, PO
     Route: 048
     Dates: start: 20111101
  7. GABAPENTIN [Concomitant]
  8. NEUPOGEN [Concomitant]

REACTIONS (1)
  - PANCYTOPENIA [None]
